FAERS Safety Report 13632274 (Version 1)
Quarter: 2017Q2

REPORT INFORMATION
  Report Type: Spontaneous
  Country: US (occurrence: US)
  Receive Date: 20170608
  Receipt Date: 20170608
  Transmission Date: 20170830
  Serious: No
  Sender: FDA-Public Use
  Company Number: US-BIOGEN-2017BI00412574

PATIENT
  Sex: Female

DRUGS (1)
  1. TECFIDERA [Suspect]
     Active Substance: DIMETHYL FUMARATE
     Indication: MULTIPLE SCLEROSIS
     Route: 048
     Dates: start: 20140214

REACTIONS (5)
  - Malaise [Recovered/Resolved]
  - Decreased appetite [Recovered/Resolved]
  - Multiple sclerosis relapse [Recovered/Resolved]
  - Cognitive disorder [Recovered/Resolved]
  - Vomiting [Recovered/Resolved]
